FAERS Safety Report 19269567 (Version 1)
Quarter: 2021Q2

REPORT INFORMATION
  Report Type: Spontaneous
  Country: ES (occurrence: ES)
  Receive Date: 20210518
  Receipt Date: 20210518
  Transmission Date: 20210717
  Serious: Yes (Other)
  Sender: FDA-Public Use
  Company Number: ES-TEVA-2021-ES-1911958

PATIENT
  Age: 61 Year
  Sex: Male

DRUGS (18)
  1. BUDESONIDA/FORMOTEROL [Concomitant]
     Route: 055
     Dates: start: 20190311
  2. PARACETAMOL [Concomitant]
     Active Substance: ACETAMINOPHEN
     Dates: start: 20201220, end: 20210104
  3. LOSARTAN. [Concomitant]
     Active Substance: LOSARTAN
     Dates: start: 20170518
  4. OXIGENO MEDICINAL [Concomitant]
     Dates: start: 20201220, end: 20201220
  5. FUROSEMIDA [Concomitant]
     Active Substance: FUROSEMIDE
     Dates: start: 20201216
  6. TIAMINA [Concomitant]
     Dates: start: 20201221, end: 20201228
  7. ACIDO FOLICO [Concomitant]
     Active Substance: CYANOCOBALAMIN\FOLIC ACID\PYRIDOXINE HYDROCHLORIDE
     Dosage: 5 MILLIGRAM DAILY;
     Dates: start: 20201220, end: 20210104
  8. ENOXAPARINA [Concomitant]
     Active Substance: ENOXAPARIN
     Dates: start: 20201220, end: 20210104
  9. MONTELUKAST [Concomitant]
     Active Substance: MONTELUKAST SODIUM
     Dates: start: 20131202
  10. GLUCOSA 5% [Concomitant]
     Dates: start: 20201220, end: 20210104
  11. SIMVASTATINA [Concomitant]
     Active Substance: SIMVASTATIN
     Dates: start: 20130801
  12. ESPIRONOLACTONA [Concomitant]
     Active Substance: SPIRONOLACTONE
     Dates: start: 20201127
  13. DIAZEPAM. [Concomitant]
     Active Substance: DIAZEPAM
     Dates: start: 20201221, end: 20210104
  14. BUDESONIDA [Concomitant]
     Active Substance: BUDESONIDE
     Route: 045
     Dates: start: 20200204
  15. HIDROXICINA [Concomitant]
     Dates: start: 20201220, end: 20210104
  16. AMOXICILINA / ACIDO CLAVULANICO [Suspect]
     Active Substance: AMOXICILLIN\CLAVULANIC ACID
     Dosage: 1G EVERY 8H , UNIT DOSE : 1 DF
     Dates: start: 20201220, end: 20201223
  17. LORATADINA [Concomitant]
     Active Substance: LORATADINE
     Dates: start: 20131202
  18. CLOMETIAZOL [Concomitant]
     Active Substance: CLOMETHIAZOLE
     Dates: start: 20201220, end: 20210104

REACTIONS (1)
  - Hepatitis toxic [Recovering/Resolving]

NARRATIVE: CASE EVENT DATE: 20201220
